FAERS Safety Report 5334475-0 (Version None)
Quarter: 2007Q2

REPORT INFORMATION
  Report Type: 
  Country: None (occurrence: None)
  Receive Date: 20070525
  Receipt Date: 20070514
  Transmission Date: 20071010
  Serious: Yes (Hospitalization)
  Sender: FDA-Public Use
  Company Number: SE-NOVOPROD-262627

PATIENT
  Age: 17 Year
  Sex: Female
  Weight: 47 kg

DRUGS (1)
  1. NORDITROPIN [Suspect]
     Indication: GROWTH HORMONE DEFICIENCY
     Route: 058
     Dates: start: 20020515, end: 20050311

REACTIONS (2)
  - CONVULSION [None]
  - ENCEPHALITIS VIRAL [None]
